FAERS Safety Report 21035316 (Version 1)
Quarter: 2022Q3

REPORT INFORMATION
  Report Type: Spontaneous
  Country: US (occurrence: None)
  Receive Date: 20220701
  Receipt Date: 20220701
  Transmission Date: 20221027
  Serious: Yes (Hospitalization)
  Sender: FDA-Public Use
  Company Number: None

PATIENT
  Age: 26 Year
  Sex: Female
  Weight: 73 kg

DRUGS (1)
  1. SIMVASTATIN [Suspect]
     Active Substance: SIMVASTATIN
     Indication: Pancreatitis
     Dosage: 40 MG QD PO?
     Route: 048
     Dates: start: 20181203, end: 20190527

REACTIONS (2)
  - Pancreatitis relapsing [None]
  - Blood sodium decreased [None]

NARRATIVE: CASE EVENT DATE: 20190528
